FAERS Safety Report 8683761 (Version 3)
Quarter: 2013Q1

REPORT INFORMATION
  Report Type: Spontaneous
  Country: US (occurrence: US)
  Receive Date: 20120726
  Receipt Date: 20130130
  Transmission Date: 20140127
  Serious: Yes (Hospitalization)
  Sender: FDA-Public Use
  Company Number: PHEH2012US014545

PATIENT
  Age: 54 Year
  Sex: Female
  Weight: 130.61 kg

DRUGS (10)
  1. TASIGNA [Suspect]
     Dosage: 300 MG, BID
     Route: 048
     Dates: start: 201203
  2. JANUMET [Concomitant]
  3. JANUVIA [Concomitant]
     Dosage: UNK UKN, UNK
  4. LIPITOR [Concomitant]
     Dosage: 20 MG, UNK
  5. TRICOR [Concomitant]
     Dosage: 145 MG, UNK
  6. LANTUS [Concomitant]
     Dosage: 100 ML, UNK
  7. LISINOPRIL [Concomitant]
     Dosage: 10 MG, UNK
  8. NOVOLOG [Concomitant]
  9. METOPROLOL [Concomitant]
     Dosage: 50 MG, UNK
  10. ASPIRIN [Concomitant]

REACTIONS (8)
  - Localised infection [Unknown]
  - Hyperglycaemia [Recovering/Resolving]
  - Local swelling [Unknown]
  - Abdominal distension [Unknown]
  - Dizziness [Unknown]
  - Pruritus [Unknown]
  - Constipation [Unknown]
  - Fatigue [Unknown]
